FAERS Safety Report 6482014 (Version 1)
Quarter: 2020Q3

REPORT INFORMATION
  Report Type: Report from Study
  Country: US (occurrence: US)
  Receive Date: 20071206
  Receipt Date: 20071206
  Transmission Date: 20201105
  Serious: Yes (Hospitalization)
  Sender: FDA-Public Use
  Company Number: US-JNJFOC-20071000121

PATIENT
  Age: 0 Year
  Sex: Male
  Weight: 9.07 kg

DRUGS (2)
  1. TOPIRAMATE. [Suspect]
     Active Substance: TOPIRAMATE
     Indication: EPILEPSY
  2. TOPIRAMATE. [Suspect]
     Active Substance: TOPIRAMATE

REACTIONS (1)
  - Feeding disorder [Recovered/Resolved]

NARRATIVE: CASE EVENT DATE: 20070830
